FAERS Safety Report 6284781-0 (Version None)
Quarter: 2009Q3

REPORT INFORMATION
  Report Type: 
  Country: None (occurrence: None)
  Receive Date: 20090727
  Receipt Date: 20090720
  Transmission Date: 20100115
  Serious: Yes (Hospitalization)
  Sender: FDA-Public Use
  Company Number: PHHO2009FR09025

PATIENT
  Sex: Female

DRUGS (6)
  1. COTAREG [Suspect]
     Dosage: UNK
     Dates: start: 20090528, end: 20090604
  2. SORAFENIB [Suspect]
     Indication: HEPATIC NEOPLASM MALIGNANT
     Dosage: 800 MG, QD
     Route: 048
     Dates: start: 20090528
  3. NOVONORM [Concomitant]
  4. STAGID [Concomitant]
  5. LOPRESSOR [Concomitant]
  6. VOGALENE [Concomitant]

REACTIONS (2)
  - HYPONATRAEMIA [None]
  - NAUSEA [None]
